FAERS Safety Report 25972592 (Version 1)
Quarter: 2025Q4

REPORT INFORMATION
  Report Type: Spontaneous
  Country: US (occurrence: None)
  Receive Date: 20251029
  Receipt Date: 20251029
  Transmission Date: 20260118
  Serious: No
  Sender: UCB
  Company Number: US-UCBSA-2025049303

PATIENT

DRUGS (1)
  1. BIMZELX [Suspect]
     Active Substance: BIMEKIZUMAB-BKZX
     Indication: Hidradenitis
     Dosage: UNK (MOST RECENT DOSE: 04-AUG-2025)

REACTIONS (6)
  - Hidradenitis [Unknown]
  - Malaise [Unknown]
  - Chills [Unknown]
  - Hot flush [Unknown]
  - Night sweats [Unknown]
  - Drug ineffective [Unknown]
